FAERS Safety Report 8563831-2 (Version None)
Quarter: 2012Q3

REPORT INFORMATION
  Report Type: 
  Country: None (occurrence: None)
  Receive Date: 20120727
  Receipt Date: 20120727
  Transmission Date: 20120928
  Serious: Yes (Hospitalization)
  Sender: FDA-Public Use
  Company Number: None

PATIENT
  Age: 65 Year
  Sex: Female
  Weight: 65 kg

DRUGS (6)
  1. LOPRESSOR [Concomitant]
  2. ZOFRAN [Concomitant]
  3. ATIVAN [Concomitant]
  4. PROCHLORPERAZINC [Concomitant]
  5. RANITIDINE [Concomitant]
  6. LOMOTIL [Suspect]
     Indication: DIARRHOEA
     Dosage: 2.5/0.25 BID, PO
     Route: 048

REACTIONS (5)
  - ILEUS [None]
  - DRUG ADMINISTRATION ERROR [None]
  - NEOPLASM PROGRESSION [None]
  - CONSTIPATION [None]
  - GASTRIC CANCER [None]
